FAERS Safety Report 12701880 (Version 1)
Quarter: 2016Q3

REPORT INFORMATION
  Report Type: Spontaneous
  Country: US (occurrence: US)
  Receive Date: 20160831
  Receipt Date: 20160831
  Transmission Date: 20161109
  Serious: No
  Sender: FDA-Public Use
  Company Number: US-JAZZ-2016-US-007619

PATIENT
  Sex: Female

DRUGS (10)
  1. XYREM [Suspect]
     Active Substance: SODIUM OXYBATE
     Indication: NARCOLEPSY
     Dosage: 4.5 G, BID
     Route: 048
     Dates: start: 200211
  2. FISH OIL CONCENTRATE [Concomitant]
  3. MIRENA [Concomitant]
     Active Substance: LEVONORGESTREL
  4. GLUCOSAMINE CHONDROITIN [Concomitant]
     Active Substance: CHONDROITIN SULFATE (BOVINE)\GLUCOSAMINE HYDROCHLORIDE
  5. AKNE-MYCIN [Concomitant]
     Active Substance: ERYTHROMYCIN
  6. MUPIROCIN. [Concomitant]
     Active Substance: MUPIROCIN
  7. ALEVE [Concomitant]
     Active Substance: NAPROXEN SODIUM
  8. VITAMIN D3 [Concomitant]
     Active Substance: CHOLECALCIFEROL
  9. DESOXYN [Concomitant]
     Active Substance: METHAMPHETAMINE HYDROCHLORIDE
  10. OXISTAT [Concomitant]
     Active Substance: OXICONAZOLE NITRATE

REACTIONS (2)
  - Unevaluable event [Unknown]
  - Neck pain [Not Recovered/Not Resolved]
